FAERS Safety Report 20684421 (Version 2)
Quarter: 2022Q2

REPORT INFORMATION
  Report Type: Spontaneous
  Country: US (occurrence: US)
  Receive Date: 20220407
  Receipt Date: 20220503
  Transmission Date: 20220721
  Serious: Yes (Hospitalization, Other)
  Sender: FDA-Public Use
  Company Number: US-PFIZER INC-202101418669

PATIENT
  Age: 43 Year
  Sex: Male
  Weight: 90.703 kg

DRUGS (4)
  1. INLYTA [Suspect]
     Active Substance: AXITINIB
     Indication: Renal cell carcinoma
     Dosage: 5 MG, 2X/DAY
     Route: 048
     Dates: start: 20210922
  2. INLYTA [Suspect]
     Active Substance: AXITINIB
     Dosage: 3 MG, 2X/DAY
     Route: 048
     Dates: start: 20210922, end: 202202
  3. XGEVA [Concomitant]
     Active Substance: DENOSUMAB
     Dosage: 120 MG(120MG/1.7 VIAL)
  4. AMLODIPINE BESYLATE [Concomitant]
     Active Substance: AMLODIPINE BESYLATE
     Dosage: UNK

REACTIONS (8)
  - Renal mass [Recovering/Resolving]
  - Renal disorder [Recovering/Resolving]
  - Hyperaesthesia [Unknown]
  - Pain in extremity [Unknown]
  - Discomfort [Unknown]
  - Fatigue [Unknown]
  - Blood potassium increased [Unknown]
  - Palmar-plantar erythrodysaesthesia syndrome [Recovering/Resolving]

NARRATIVE: CASE EVENT DATE: 20220228
